FAERS Safety Report 21187866 (Version 1)
Quarter: 2022Q3

REPORT INFORMATION
  Report Type: Spontaneous
  Country: CN (occurrence: CN)
  Receive Date: 20220809
  Receipt Date: 20220809
  Transmission Date: 20221027
  Serious: Yes (Other)
  Sender: FDA-Public Use
  Company Number: None

PATIENT
  Age: 34 Year
  Sex: Female
  Weight: 56 kg

DRUGS (9)
  1. CYCLOPHOSPHAMIDE [Suspect]
     Active Substance: CYCLOPHOSPHAMIDE
     Indication: Invasive breast carcinoma
     Dosage: 0.65 G, QD, CYCLOPHOSPHAMIDE (0.65G) DILUTED WITH SOLVENT 0.9% SODIUM CHLORIDE INJECTION (500 ML), O
     Route: 041
     Dates: start: 20220716, end: 20220716
  2. CYCLOPHOSPHAMIDE [Suspect]
     Active Substance: CYCLOPHOSPHAMIDE
     Indication: Breast cancer stage II
  3. SODIUM CHLORIDE [Suspect]
     Active Substance: SODIUM CHLORIDE
     Indication: Medication dilution
     Dosage: 500 ML, QD, PIRARUBICIN HYDROCHLORIDE (80MG) DILUTED WITH SOLVENT 0.9% SODIUM CHLORIDE INJECTION (50
     Route: 041
     Dates: start: 20220716, end: 20220716
  4. SODIUM CHLORIDE [Suspect]
     Active Substance: SODIUM CHLORIDE
     Dosage: 500, ML, FLUOROURACIL (800 MG) DILUTED WITH SOLVENT 0.9% SODIUM CHLORIDE INJECTION (500 ML), ONCE MA
     Route: 041
     Dates: start: 20220716, end: 20220716
  5. FLUOROURACIL [Suspect]
     Active Substance: FLUOROURACIL
     Indication: Invasive breast carcinoma
     Dosage: 800 MG, QD, FLUOROURACIL (800 MG) DILUTED WITH SOLVENT 0.9% SODIUM CHLORIDE INJECTION (500 ML), ONCE
     Route: 041
     Dates: start: 20220716, end: 20220716
  6. FLUOROURACIL [Suspect]
     Active Substance: FLUOROURACIL
     Indication: Breast cancer stage II
  7. PIRARUBICIN HYDROCHLORIDE [Suspect]
     Active Substance: PIRARUBICIN HYDROCHLORIDE
     Indication: Invasive breast carcinoma
     Dosage: 80 MG, QD, PIRARUBICIN HYDROCHLORIDE (80MG) DILUTED WITH SOLVENT 0.9% SODIUM CHLORIDE INJECTION (500
     Route: 041
     Dates: start: 20220716, end: 20220716
  8. PIRARUBICIN HYDROCHLORIDE [Suspect]
     Active Substance: PIRARUBICIN HYDROCHLORIDE
     Indication: Breast cancer stage II
  9. SODIUM CHLORIDE [Suspect]
     Active Substance: SODIUM CHLORIDE
     Indication: Medication dilution
     Dosage: 500 ML, QD, CYCLOPHOSPHAMIDE (0.65G) DILUTED WITH SOLVENT 0.9% SODIUM CHLORIDE INJECTION (500 ML), O
     Route: 041
     Dates: start: 20220716, end: 20220716

REACTIONS (2)
  - White blood cell count decreased [Recovering/Resolving]
  - Neutrophil count decreased [Recovering/Resolving]

NARRATIVE: CASE EVENT DATE: 20220719
